FAERS Safety Report 14401530 (Version 1)
Quarter: 2018Q1

REPORT INFORMATION
  Report Type: Report from Study
  Country: US (occurrence: US)
  Receive Date: 20180117
  Receipt Date: 20180117
  Transmission Date: 20180509
  Serious: No
  Sender: FDA-Public Use
  Company Number: PHEH2018US001816

PATIENT
  Age: 81 Year
  Sex: Male
  Weight: 54.4 kg

DRUGS (1)
  1. ENTRESTO [Suspect]
     Active Substance: SACUBITRIL\VALSARTAN
     Indication: PRODUCT USED FOR UNKNOWN INDICATION
     Dosage: 1 DF (24 SACUBITRIL /26 MG SACUBITRIL), BID (ONE IN MORNING AND ONE IN EVENING)
     Route: 048
     Dates: start: 20171101

REACTIONS (2)
  - Blood pressure abnormal [Recovering/Resolving]
  - Diarrhoea [Recovering/Resolving]

NARRATIVE: CASE EVENT DATE: 20171101
